FAERS Safety Report 4752953-X (Version None)
Quarter: 2005Q3

REPORT INFORMATION
  Report Type: 
  Country: None (occurrence: None)
  Receive Date: 20050823
  Receipt Date: 20050810
  Transmission Date: 20060218
  Serious: Yes (Hospitalization)
  Sender: FDA-Public Use
  Company Number: USA050393750

PATIENT
  Age: 56 Year
  Sex: Female

DRUGS (1)
  1. FORTEO [Suspect]
     Indication: OSTEOPOROSIS
     Dates: start: 20030425, end: 20050401

REACTIONS (3)
  - INCISION SITE CELLULITIS [None]
  - OSTEOARTHRITIS [None]
  - TIBIA FRACTURE [None]
